FAERS Safety Report 5483056-7 (Version None)
Quarter: 2007Q4

REPORT INFORMATION
  Report Type: 
  Country: None (occurrence: None)
  Receive Date: 20071011
  Receipt Date: 20071004
  Transmission Date: 20080405
  Serious: Yes (Hospitalization, Other)
  Sender: FDA-Public Use
  Company Number: US-GILEAD-2007-0013548

PATIENT
  Sex: Male
  Weight: 99.88 kg

DRUGS (12)
  1. LETAIRIS [Suspect]
     Indication: PULMONARY HYPERTENSION
     Route: 048
     Dates: start: 20070810, end: 20070811
  2. OXYGEN [Concomitant]
     Route: 055
  3. LASIX [Concomitant]
     Route: 048
  4. COUMADIN [Concomitant]
     Route: 048
  5. NORVASC [Concomitant]
     Route: 048
  6. LIPITOR [Concomitant]
     Route: 048
  7. NEURONTIN [Concomitant]
     Route: 048
  8. NAPROSYN [Concomitant]
     Route: 048
  9. GEMFIBROZIL [Concomitant]
     Route: 048
  10. FLOMAX [Concomitant]
     Route: 048
  11. CO Q-10 [Concomitant]
     Route: 048
  12. GLUCOSAMINE [Concomitant]
     Route: 048

REACTIONS (2)
  - RESPIRATORY DISTRESS [None]
  - THROAT TIGHTNESS [None]
